FAERS Safety Report 21568723 (Version 2)
Quarter: 2022Q4

REPORT INFORMATION
  Report Type: Spontaneous
  Country: JP (occurrence: JP)
  Receive Date: 20221108
  Receipt Date: 20221201
  Transmission Date: 20230113
  Serious: Yes (Hospitalization)
  Sender: FDA-Public Use
  Company Number: JP-NBI-J202218595BIPI

PATIENT
  Age: 9 Decade
  Sex: Male

DRUGS (1)
  1. LINAGLIPTIN [Suspect]
     Active Substance: LINAGLIPTIN
     Indication: Diabetes mellitus
     Route: 048
     Dates: end: 20221106

REACTIONS (2)
  - Pneumonia [Unknown]
  - Pemphigoid [Unknown]

NARRATIVE: CASE EVENT DATE: 20220918
